FAERS Safety Report 11226999 (Version 1)
Quarter: 2015Q2

REPORT INFORMATION
  Report Type: Spontaneous
  Country: US (occurrence: US)
  Receive Date: 20150630
  Receipt Date: 20150630
  Transmission Date: 20150821
  Serious: Yes (Other)
  Sender: FDA-Public Use
  Company Number: US-AMGEN-USASP2015062162

PATIENT

DRUGS (2)
  1. ENBREL [Suspect]
     Active Substance: ETANERCEPT
     Indication: PRODUCT USED FOR UNKNOWN INDICATION
     Dosage: UNK
     Route: 065
  2. ORENCIA [Concomitant]
     Active Substance: ABATACEPT
     Dosage: UNK

REACTIONS (6)
  - Malaise [Unknown]
  - Upper respiratory tract infection [Unknown]
  - Adverse drug reaction [Unknown]
  - Ill-defined disorder [Unknown]
  - Rheumatoid vasculitis [Unknown]
  - Rheumatoid arthritis [Unknown]
